FAERS Safety Report 24740790 (Version 1)
Quarter: 2024Q4

REPORT INFORMATION
  Report Type: Spontaneous
  Country: US (occurrence: US)
  Receive Date: 20241217
  Receipt Date: 20241217
  Transmission Date: 20250115
  Serious: No
  Sender: BIOGEN
  Company Number: US-BIOGEN-2024BI01293622

PATIENT
  Sex: Female

DRUGS (1)
  1. SKYCLARYS [Suspect]
     Active Substance: OMAVELOXOLONE
     Indication: Product used for unknown indication
     Route: 050
     Dates: start: 2024

REACTIONS (4)
  - Pruritus [Unknown]
  - Pain in extremity [Unknown]
  - Pain in extremity [Unknown]
  - Constipation [Unknown]

NARRATIVE: CASE EVENT DATE: 20240101
